FAERS Safety Report 10249463 (Version 1)
Quarter: 2014Q2

REPORT INFORMATION
  Report Type: Spontaneous
  Country: GB (occurrence: GB)
  Receive Date: 20140620
  Receipt Date: 20140620
  Transmission Date: 20141212
  Serious: Yes (Other)
  Sender: FDA-Public Use
  Company Number: GB-PFIZER INC-2014163784

PATIENT
  Sex: Female

DRUGS (2)
  1. TAZOCIN [Suspect]
     Indication: OSTEOMYELITIS
     Dosage: UNK
     Route: 065
     Dates: start: 20140424, end: 20140510
  2. SODIUM CHLORIDE [Suspect]
     Indication: OSTEOMYELITIS
     Dosage: UNK
     Route: 065
     Dates: start: 20140424, end: 20140510

REACTIONS (4)
  - C-reactive protein increased [Unknown]
  - Vomiting [Unknown]
  - Pyrexia [Unknown]
  - Hypersensitivity [Unknown]
